FAERS Safety Report 18414866 (Version 2)
Quarter: 2020Q4

REPORT INFORMATION
  Report Type: Report from Study
  Country: BE (occurrence: BE)
  Receive Date: 20201022
  Receipt Date: 20201110
  Transmission Date: 20210114
  Serious: Yes (Death)
  Sender: FDA-Public Use
  Company Number: BE-BIOVITRUM-2020BE5594

PATIENT
  Age: 75 Year

DRUGS (3)
  1. APROTININ [Concomitant]
     Active Substance: APROTININ
     Dates: start: 20201003, end: 20201016
  2. ANAKINRA [Suspect]
     Active Substance: ANAKINRA
     Indication: COVID-19
     Dates: start: 20201001, end: 20201016
  3. CLEXANE [Concomitant]
     Active Substance: ENOXAPARIN SODIUM
     Indication: ACUTE KIDNEY INJURY
     Dosage: THEN MOVED TO OPEN LABEL 20MG
     Dates: end: 20201009

REACTIONS (2)
  - Respiratory failure [Fatal]
  - Renal failure [Fatal]

NARRATIVE: CASE EVENT DATE: 20201012
